FAERS Safety Report 25829558 (Version 1)
Quarter: 2025Q3

REPORT INFORMATION
  Report Type: Spontaneous
  Country: AU (occurrence: AU)
  Receive Date: 20250922
  Receipt Date: 20250922
  Transmission Date: 20251021
  Serious: Yes (Death, Other)
  Sender: JOHNSON AND JOHNSON
  Company Number: AU-JNJFOC-20231030488

PATIENT
  Age: 9 Decade
  Sex: Female

DRUGS (3)
  1. SPORANOX [Suspect]
     Active Substance: ITRACONAZOLE
     Indication: Histoplasmosis
     Route: 048
  2. SPORANOX [Suspect]
     Active Substance: ITRACONAZOLE
     Route: 048
  3. AMPHOTERICIN B [Suspect]
     Active Substance: AMPHOTERICIN B
     Indication: Histoplasmosis
     Dosage: 3 MG/KG
     Route: 042

REACTIONS (6)
  - Pneumonia aspiration [Fatal]
  - Renal impairment [Fatal]
  - Abdominal distension [Unknown]
  - Condition aggravated [Unknown]
  - Drug ineffective [Unknown]
  - Off label use [Unknown]
